FAERS Safety Report 9942274 (Version 2)
Quarter: 2014Q1

REPORT INFORMATION
  Report Type: Report from Study
  Country: JP (occurrence: JP)
  Receive Date: 20140303
  Receipt Date: 20140305
  Transmission Date: 20141002
  Serious: Yes (Other)
  Sender: FDA-Public Use
  Company Number: PHHO2014JP002853

PATIENT
  Age: 86 Year
  Sex: Male
  Weight: 46 kg

DRUGS (5)
  1. EXELON [Suspect]
     Indication: DEMENTIA ALZHEIMER^S TYPE
     Dosage: 3 STEP TITRATION
     Route: 062
     Dates: start: 20131029, end: 20140221
  2. MEMARY [Concomitant]
     Indication: DEMENTIA ALZHEIMER^S TYPE
     Dosage: 5 MG, UNK
     Route: 048
     Dates: start: 20130527
  3. YOKUKANSAN [Concomitant]
     Indication: DEMENTIA ALZHEIMER^S TYPE
     Dosage: 75 G, UNK
     Route: 048
     Dates: start: 20121105
  4. HIRUDOID [Concomitant]
     Route: 062
     Dates: start: 20131029, end: 20140221
  5. CRAVIT [Concomitant]
     Indication: CYSTITIS
     Dosage: 250 MG, BID
     Route: 048
     Dates: start: 20140217, end: 20140224

REACTIONS (1)
  - Bladder cancer [Not Recovered/Not Resolved]
